FAERS Safety Report 5464626-9 (Version None)
Quarter: 2007Q3

REPORT INFORMATION
  Report Type: 
  Country: None (occurrence: None)
  Receive Date: 20070921
  Receipt Date: 20070910
  Transmission Date: 20080115
  Serious: Yes (Death, Other)
  Sender: FDA-Public Use
  Company Number: JP-PFIZER INC-2007076310

PATIENT
  Age: 71 Year
  Sex: Male
  Weight: 43 kg

DRUGS (2)
  1. SOLU-MEDROL [Suspect]
     Indication: PNEUMONIA
     Dosage: DAILY DOSE:125MG
     Route: 042
     Dates: start: 20030711, end: 20030719
  2. PREDNISOLONE [Suspect]
     Indication: PNEUMONIA

REACTIONS (3)
  - ACUTE RESPIRATORY DISTRESS SYNDROME [None]
  - HERPES OESOPHAGITIS [None]
  - SEPTIC SHOCK [None]
